FAERS Safety Report 23331058 (Version 1)
Quarter: 2023Q4

REPORT INFORMATION
  Report Type: Spontaneous
  Country: US (occurrence: None)
  Receive Date: 20231221
  Receipt Date: 20231221
  Transmission Date: 20240110
  Serious: Yes (Hospitalization, Disabling)
  Sender: FDA-Public Use
  Company Number: None

PATIENT
  Age: 3 Year
  Sex: Female
  Weight: 19.35 kg

DRUGS (1)
  1. CEPHALEXIN [Suspect]
     Active Substance: CEPHALEXIN
     Indication: Upper respiratory tract infection
     Dates: start: 20231008, end: 20231018

REACTIONS (3)
  - Abdominal pain upper [None]
  - Mood swings [None]
  - Decreased appetite [None]

NARRATIVE: CASE EVENT DATE: 20231213
